FAERS Safety Report 10142786 (Version 2)
Quarter: 2014Q2

REPORT INFORMATION
  Report Type: Spontaneous
  Country: BR (occurrence: BR)
  Receive Date: 20140430
  Receipt Date: 20140625
  Transmission Date: 20141212
  Serious: Yes (Hospitalization, Other)
  Sender: FDA-Public Use
  Company Number: BR-ASTRAZENECA-2014SE28044

PATIENT
  Age: 78 Year
  Sex: Female
  Weight: 75 kg

DRUGS (6)
  1. BRILINTA [Suspect]
     Indication: ANGINA UNSTABLE
     Route: 048
     Dates: start: 20131129
  2. PLOCORALAN [Concomitant]
     Route: 048
  3. MONOCORDIL [Concomitant]
     Route: 048
  4. SIMVASTATIN [Concomitant]
     Route: 048
  5. VASTAREL [Concomitant]
     Route: 048
  6. PURAN T4 [Concomitant]
     Route: 048

REACTIONS (1)
  - Vascular graft occlusion [Not Recovered/Not Resolved]
